FAERS Safety Report 6446214-0 (Version None)
Quarter: 2009Q4

REPORT INFORMATION
  Report Type: 
  Country: None (occurrence: None)
  Receive Date: 20091119
  Receipt Date: 20091112
  Transmission Date: 20100525
  Serious: Yes (Hospitalization)
  Sender: FDA-Public Use
  Company Number: TW-BRACCO-000007

PATIENT
  Age: 75 Year
  Sex: Female

DRUGS (2)
  1. BARIUM SULFATE [Suspect]
     Indication: PROTEIN-LOSING GASTROENTEROPATHY
     Route: 054
  2. BARIUM SULFATE [Suspect]
     Indication: BARIUM DOUBLE CONTRAST
     Route: 054

REACTIONS (1)
  - APPENDICITIS [None]
